FAERS Safety Report 19297184 (Version 1)
Quarter: 2021Q2

REPORT INFORMATION
  Report Type: Spontaneous
  Country: LU (occurrence: LU)
  Receive Date: 20210524
  Receipt Date: 20210524
  Transmission Date: 20210717
  Serious: Yes (Hospitalization)
  Sender: FDA-Public Use
  Company Number: LU-BAYER-2021-141062

PATIENT
  Age: 63 Year
  Sex: Female
  Weight: 85 kg

DRUGS (9)
  1. ZANIDIP [Concomitant]
     Active Substance: LERCANIDIPINE HYDROCHLORIDE
     Route: 048
     Dates: start: 2019
  2. PROZAC [Concomitant]
     Active Substance: FLUOXETINE HYDROCHLORIDE
     Route: 048
     Dates: start: 2019
  3. PRAZIQUANTEL. [Suspect]
     Active Substance: PRAZIQUANTEL
     Indication: INFECTION PARASITIC
     Dosage: 600 MG, ONCE
     Route: 048
     Dates: start: 20210419, end: 20210419
  4. MODERNA COVID?19 VACCINE [Suspect]
     Active Substance: CX-024414
     Indication: COVID-19 IMMUNISATION
     Dosage: D1
     Route: 030
     Dates: start: 20210419, end: 20210419
  5. ZESTORETIC [Concomitant]
     Active Substance: HYDROCHLOROTHIAZIDE\LISINOPRIL
     Route: 048
     Dates: start: 2019
  6. CONCOR [Concomitant]
     Active Substance: BISOPROLOL FUMARATE
     Route: 048
     Dates: start: 2019
  7. PARIET [Concomitant]
     Active Substance: RABEPRAZOLE SODIUM
     Route: 048
     Dates: start: 2019
  8. ATORVASTATINE [ATORVASTATIN] [Concomitant]
     Active Substance: ATORVASTATIN
     Route: 048
     Dates: start: 2019
  9. CALMDAY [Concomitant]
     Route: 048
     Dates: start: 2019

REACTIONS (10)
  - Pyrexia [Recovered/Resolved]
  - Dyspnoea exertional [Recovering/Resolving]
  - Abdominal pain upper [Recovered/Resolved]
  - Feeling of body temperature change [Recovered/Resolved]
  - Dyspnoea [Recovering/Resolving]
  - Asthenia [Recovered/Resolved]
  - Insomnia [Recovering/Resolving]
  - Night sweats [Recovered/Resolved]
  - Pulmonary embolism [Not Recovered/Not Resolved]
  - Pain [Recovered/Resolved]

NARRATIVE: CASE EVENT DATE: 20210419
